FAERS Safety Report 9319916 (Version 2)
Quarter: 2013Q2

REPORT INFORMATION
  Report Type: Spontaneous
  Country: US (occurrence: US)
  Receive Date: 20130530
  Receipt Date: 20130605
  Transmission Date: 20140414
  Serious: Yes (Other)
  Sender: FDA-Public Use
  Company Number: US-BRISTOL-MYERS SQUIBB COMPANY-18917526

PATIENT
  Age: 70 Year
  Sex: Female
  Weight: 104.31 kg

DRUGS (8)
  1. ABATACEPT SUBQ INJECTION 125MG/ML [Suspect]
     Indication: RHEUMATOID ARTHRITIS
     Dosage: 1DF:125MG INCREASED:2 SHOTS 125MG EACH 250MG WEEK (TUESDAY).?PRES #:1819078-3?LAST INJ:14MAY13
     Route: 058
  2. VITAMIN B12 [Concomitant]
  3. L-LYSINE [Concomitant]
  4. VITAMIN D [Concomitant]
  5. ASPIRIN [Concomitant]
  6. NEXIUM [Concomitant]
  7. VITAMIN C [Concomitant]
  8. FOLIC ACID [Concomitant]

REACTIONS (10)
  - Venous insufficiency [Not Recovered/Not Resolved]
  - Aphthous stomatitis [Not Recovered/Not Resolved]
  - Weight increased [Not Recovered/Not Resolved]
  - Headache [Not Recovered/Not Resolved]
  - Eye pain [Not Recovered/Not Resolved]
  - Dizziness [Not Recovered/Not Resolved]
  - Oral herpes [Not Recovered/Not Resolved]
  - Hunger [Unknown]
  - Vitamin D decreased [Unknown]
  - Arthralgia [Unknown]
